FAERS Safety Report 7942449-6 (Version None)
Quarter: 2011Q4

REPORT INFORMATION
  Report Type: 
  Country: None (occurrence: None)
  Receive Date: 20111128
  Receipt Date: 20110307
  Transmission Date: 20120403
  Serious: Yes (Hospitalization)
  Sender: FDA-Public Use
  Company Number: US-GLAXOSMITHKLINE-A0917682A

PATIENT
  Age: 66 Year
  Sex: Male

DRUGS (1)
  1. ROSIGLITAZONE MALEATE [Suspect]
     Indication: DIABETES MELLITUS
     Dosage: 4MG TWICE PER DAY
     Route: 048
     Dates: start: 20050101, end: 20080101

REACTIONS (4)
  - CARDIAC FAILURE CONGESTIVE [None]
  - ANEURYSM [None]
  - CORONARY ARTERY BYPASS [None]
  - CARDIAC DISORDER [None]
